FAERS Safety Report 7010601-2 (Version None)
Quarter: 2010Q3

REPORT INFORMATION
  Report Type: 
  Country: None (occurrence: None)
  Receive Date: 20100923
  Receipt Date: 20100916
  Transmission Date: 20110219
  Serious: Yes (Hospitalization)
  Sender: FDA-Public Use
  Company Number: US-ABBOTT-10P-163-0671408-00

PATIENT
  Sex: Female
  Weight: 84.898 kg

DRUGS (5)
  1. HUMIRA [Suspect]
     Indication: RHEUMATOID ARTHRITIS
     Dates: start: 20090101, end: 20100601
  2. HUMIRA [Suspect]
     Dates: start: 20100801
  3. PREDNISONE TAB [Concomitant]
     Indication: RHEUMATOID ARTHRITIS
  4. METHOTREXATE [Concomitant]
     Indication: RHEUMATOID ARTHRITIS
  5. LEUFLONAMIDE [Concomitant]
     Indication: GASTRIC DISORDER

REACTIONS (3)
  - BUNION [None]
  - INFECTED BUNION [None]
  - PAIN [None]
